FAERS Safety Report 10166780 (Version 1)
Quarter: 2014Q2

REPORT INFORMATION
  Report Type: Spontaneous
  Country: US (occurrence: None)
  Receive Date: 20140508
  Receipt Date: 20140508
  Transmission Date: 20141212
  Serious: Yes (Hospitalization)
  Sender: FDA-Public Use
  Company Number: UTC-047895

PATIENT
  Age: 73 Year
  Sex: Female
  Weight: 71.21 kg

DRUGS (3)
  1. TYVASO (0.6 MILLIGRAM/ MILLILITERS, AEROSOL FOR INHALATION) (TREPROSTINIL SODIUM) [Suspect]
     Indication: PULMONARY ARTERIAL HYPERTENSION
     Route: 055
     Dates: start: 20131121
  2. LETAIRIS (AMBRISENTAN) [Concomitant]
  3. ADCIRCA (TADALAFIL) [Concomitant]

REACTIONS (1)
  - Decubitus ulcer [None]
